FAERS Safety Report 9702579 (Version 1)
Quarter: 2013Q4

REPORT INFORMATION
  Report Type: Spontaneous
  Country: GB (occurrence: GB)
  Receive Date: 20131121
  Receipt Date: 20131121
  Transmission Date: 20140711
  Serious: Yes (Other)
  Sender: FDA-Public Use
  Company Number: PHHY2013GB131527

PATIENT
  Age: 56 Year
  Sex: Female
  Weight: 69.85 kg

DRUGS (4)
  1. LEVETIRACETAM [Suspect]
     Indication: EPILEPSY
     Dosage: 250 MG
     Route: 048
     Dates: start: 20131103, end: 20131106
  2. TEGRETOL [Concomitant]
  3. THYROXINE [Concomitant]
  4. RAMIPRIL [Concomitant]

REACTIONS (5)
  - Headache [Not Recovered/Not Resolved]
  - Depressed mood [Not Recovered/Not Resolved]
  - Nausea [Recovering/Resolving]
  - Dizziness [Not Recovered/Not Resolved]
  - Asthenia [Not Recovered/Not Resolved]
